FAERS Safety Report 5086562-2 (Version None)
Quarter: 2006Q3

REPORT INFORMATION
  Report Type: 
  Country: None (occurrence: None)
  Receive Date: 20060823
  Receipt Date: 20060629
  Transmission Date: 20061208
  Serious: Yes (Hospitalization)
  Sender: FDA-Public Use
  Company Number: US-GLAXOSMITHKLINE-A0610769A

PATIENT
  Age: 70 Year
  Sex: Male

DRUGS (4)
  1. WELLBUTRIN [Suspect]
     Indication: DEPRESSION
     Route: 048
  2. COMTAN [Concomitant]
     Indication: PARKINSON'S DISEASE
     Route: 048
  3. CARBIDOPA [Concomitant]
     Indication: PARKINSON'S DISEASE
     Route: 048
  4. LEVODOPA [Concomitant]
     Indication: PARKINSON'S DISEASE
     Route: 048

REACTIONS (4)
  - APHASIA [None]
  - EATING DISORDER [None]
  - MOBILITY DECREASED [None]
  - PARKINSON'S DISEASE [None]
